FAERS Safety Report 18237065 (Version 1)
Quarter: 2020Q3

REPORT INFORMATION
  Report Type: Spontaneous
  Country: GB (occurrence: GB)
  Receive Date: 20200907
  Receipt Date: 20200907
  Transmission Date: 20201103
  Serious: Yes (Other)
  Sender: FDA-Public Use
  Company Number: GB-BEH-2020122035

PATIENT
  Sex: Female

DRUGS (2)
  1. ANTI?D IMMUNOGLOBULIN (INN) [Suspect]
     Active Substance: HUMAN RHO(D) IMMUNE GLOBULIN
     Indication: PROPHYLAXIS AGAINST RH ISOIMMUNISATION
     Dosage: 29 WEEKS GESTATION
     Route: 065
  2. ANTI?D IMMUNOGLOBULIN (INN) [Suspect]
     Active Substance: HUMAN RHO(D) IMMUNE GLOBULIN
     Indication: FOETAL-MATERNAL HAEMORRHAGE
     Dosage: 3000 INTERNATIONAL UNIT, TOT
     Route: 065

REACTIONS (4)
  - Exposure during pregnancy [Unknown]
  - Exposure during pregnancy [Not Recovered/Not Resolved]
  - Stillbirth [Not Recovered/Not Resolved]
  - Drug ineffective [Unknown]
